FAERS Safety Report 13655365 (Version 2)
Quarter: 2017Q2

REPORT INFORMATION
  Report Type: Spontaneous
  Country: GR (occurrence: GR)
  Receive Date: 20170615
  Receipt Date: 20170622
  Transmission Date: 20170830
  Serious: Yes (Other)
  Sender: FDA-Public Use
  Company Number: PHHY2017GR087646

PATIENT
  Age: 46 Year
  Sex: Female

DRUGS (3)
  1. PREDNISOLONE. [Suspect]
     Active Substance: PREDNISOLONE
     Indication: SKELETAL DYSPLASIA
     Dosage: UNK
     Route: 065
  2. ZOLEDRONIC ACID [Suspect]
     Active Substance: ZOLEDRONIC ACID
     Indication: SKELETAL DYSPLASIA
     Dosage: UNK
     Route: 042
  3. CALCIFEDIOL [Suspect]
     Active Substance: CALCIFEDIOL
     Indication: SKELETAL DYSPLASIA
     Dosage: UNK
     Route: 065

REACTIONS (6)
  - Exostosis of jaw [Unknown]
  - Trismus [Unknown]
  - Oral disorder [Unknown]
  - Palatal disorder [Unknown]
  - Jaw disorder [Unknown]
  - Product use in unapproved indication [Unknown]
